FAERS Safety Report 24717373 (Version 2)
Quarter: 2024Q4

REPORT INFORMATION
  Report Type: Spontaneous
  Country: FR (occurrence: FR)
  Receive Date: 20241210
  Receipt Date: 20241216
  Transmission Date: 20250114
  Serious: Yes (Hospitalization)
  Sender: FRESENIUS KABI
  Company Number: None

PATIENT
  Age: 66 Year
  Sex: Female

DRUGS (3)
  1. LINEZOLID [Suspect]
     Active Substance: LINEZOLID
     Indication: Osteitis
     Dosage: 600 X 2
     Dates: start: 20241014, end: 20241031
  2. TAZOCILLINE 2 g/250 mg, powder for solution for infusion [Concomitant]
     Indication: Osteitis
     Dosage: 4G X 3
     Route: 042
     Dates: start: 20241014, end: 20241022
  3. LEVOFLOXACIN [Concomitant]
     Active Substance: LEVOFLOXACIN
     Indication: Osteitis
     Dates: start: 20241023

REACTIONS (1)
  - Adrenal cortex necrosis [Recovered/Resolved with Sequelae]

NARRATIVE: CASE EVENT DATE: 20241030
